FAERS Safety Report 9715251 (Version 1)
Quarter: 2013Q4

REPORT INFORMATION
  Report Type: Spontaneous
  Country: DE (occurrence: DE)
  Receive Date: 20131126
  Receipt Date: 20131126
  Transmission Date: 20140711
  Serious: Yes (Other)
  Sender: FDA-Public Use
  Company Number: DE-ABBVIE-13P-062-1173346-00

PATIENT
  Age: 57 Year
  Sex: Female

DRUGS (4)
  1. ERGENYL [Suspect]
     Indication: PRODUCT USED FOR UNKNOWN INDICATION
     Dosage: 2100 MG DAILY
     Route: 048
     Dates: start: 201302, end: 20130417
  2. ERGENYL [Suspect]
     Dosage: 2400 MG DAILY
     Route: 048
     Dates: start: 20130418
  3. QUETIAPINE FUMARATE [Suspect]
     Indication: PRODUCT USED FOR UNKNOWN INDICATION
     Dosage: 600 MG DAILY
     Route: 048
     Dates: start: 201212, end: 20130304
  4. QUETIAPINE FUMARATE [Suspect]
     Dosage: 800 MG DAILY
     Route: 048
     Dates: start: 20130305

REACTIONS (3)
  - Hyponatraemia [Recovering/Resolving]
  - Oedema [Recovering/Resolving]
  - Stasis dermatitis [Unknown]
